FAERS Safety Report 4558265-1 (Version None)
Quarter: 2005Q1

REPORT INFORMATION
  Report Type: 
  Country: None (occurrence: None)
  Receive Date: 20050121
  Receipt Date: 20050110
  Transmission Date: 20050727
  Serious: Yes (Other)
  Sender: FDA-Public Use
  Company Number: GB-BRISTOL-MYERS SQUIBB COMPANY-12819090

PATIENT
  Sex: Male

DRUGS (8)
  1. ACETYLSALICYLIC ACID SRT [Suspect]
     Route: 064
  2. ACETAMINOPHEN [Suspect]
     Route: 064
  3. POTASSIUM CHLORIDE [Suspect]
     Route: 064
  4. FUROSEMIDE [Suspect]
     Route: 064
  5. SPIRONOLACTONE [Suspect]
     Route: 064
     Dates: start: 19790101
  6. PENICILLAMINE [Suspect]
     Route: 064
  7. DEXAMETHASONE [Suspect]
     Route: 064
  8. FERROGRAD C [Suspect]
     Route: 064

REACTIONS (3)
  - ADRENOGENITAL SYNDROME [None]
  - DRUG EXPOSURE DURING PREGNANCY [None]
  - GENDER IDENTITY DISORDER [None]
